FAERS Safety Report 21153946 (Version 1)
Quarter: 2022Q3

REPORT INFORMATION
  Report Type: Spontaneous
  Country: JP (occurrence: JP)
  Receive Date: 20220801
  Receipt Date: 20220801
  Transmission Date: 20221027
  Serious: Yes (Other)
  Sender: FDA-Public Use
  Company Number: JP-CHEPLA-2022006533

PATIENT
  Sex: Female

DRUGS (3)
  1. LOCOID [Suspect]
     Active Substance: HYDROCORTISONE BUTYRATE
     Indication: Product used for unknown indication
     Route: 061
  2. PETROLATUM [Concomitant]
     Active Substance: PETROLATUM
     Indication: Product used for unknown indication
     Route: 061
  3. URAPIDIL [Concomitant]
     Active Substance: URAPIDIL
     Indication: Product used for unknown indication
     Route: 048

REACTIONS (6)
  - Dermatitis bullous [Unknown]
  - Skin exfoliation [Unknown]
  - Mass [Unknown]
  - Effusion [Unknown]
  - Pruritus [Unknown]
  - Eczema [Unknown]
